FAERS Safety Report 23178396 (Version 1)
Quarter: 2023Q4

REPORT INFORMATION
  Report Type: Spontaneous
  Country: US (occurrence: US)
  Receive Date: 20231113
  Receipt Date: 20231113
  Transmission Date: 20240110
  Serious: Yes (Other)
  Sender: FDA-Public Use
  Company Number: US-BAYER-2023A158935

PATIENT
  Sex: Female

DRUGS (1)
  1. CLIMARA [Suspect]
     Active Substance: ESTRADIOL
     Route: 062

REACTIONS (5)
  - Cerebrovascular accident [None]
  - Bacterial infection [None]
  - Weight decreased [None]
  - Bacterial vulvovaginitis [None]
  - Vaginal discharge [None]

NARRATIVE: CASE EVENT DATE: 20231025
